FAERS Safety Report 18463080 (Version 1)
Quarter: 2020Q4

REPORT INFORMATION
  Report Type: Report from Study
  Country: None (occurrence: DE)
  Receive Date: 20201104
  Receipt Date: 20201104
  Transmission Date: 20210114
  Serious: Yes (Hospitalization)
  Sender: FDA-Public Use
  Company Number: DE-ABBVIE-20K-062-3630445-00

PATIENT
  Age: 60 Year
  Sex: Female
  Weight: 76 kg

DRUGS (7)
  1. SKYRIZI [Suspect]
     Active Substance: RISANKIZUMAB-RZAA
     Indication: PSORIATIC ARTHROPATHY
  2. TREVILOR RETARD [Concomitant]
     Active Substance: VENLAFAXINE HYDROCHLORIDE
     Indication: PRODUCT USED FOR UNKNOWN INDICATION
     Dosage: 1, AS REQUIRED, NUMERIC RATING SCALE MORE THAN 3
  3. DEKRISTOL [Concomitant]
     Active Substance: CHOLECALCIFEROL
     Indication: PRODUCT USED FOR UNKNOWN INDICATION
  4. L-THYROXIN [Concomitant]
     Active Substance: LEVOTHYROXINE SODIUM
     Indication: PRODUCT USED FOR UNKNOWN INDICATION
  5. VIMOVO [Concomitant]
     Active Substance: ESOMEPRAZOLE MAGNESIUM\NAPROXEN
     Indication: PRODUCT USED FOR UNKNOWN INDICATION
     Dosage: 500/20MG
  6. PREGABALIN. [Concomitant]
     Active Substance: PREGABALIN
     Indication: PRODUCT USED FOR UNKNOWN INDICATION
  7. SKYRIZI [Suspect]
     Active Substance: RISANKIZUMAB-RZAA
     Indication: PSORIASIS
     Route: 058
     Dates: start: 20191113

REACTIONS (12)
  - Intervertebral disc protrusion [Unknown]
  - Osteochondrosis [Unknown]
  - Impaired quality of life [Recovered/Resolved]
  - Spinal osteoarthritis [Unknown]
  - Polyarthritis [Unknown]
  - Tobacco user [Unknown]
  - Intervertebral disc injury [Unknown]
  - Depression [Unknown]
  - Psoriatic arthropathy [Unknown]
  - Pain [Recovered/Resolved]
  - Impaired work ability [Recovered/Resolved]
  - Behaviour disorder [Unknown]

NARRATIVE: CASE EVENT DATE: 20200511
